FAERS Safety Report 8333581-6 (Version None)
Quarter: 2012Q2

REPORT INFORMATION
  Report Type: 
  Country: None (occurrence: None)
  Receive Date: 20120503
  Receipt Date: 20101118
  Transmission Date: 20120825
  Serious: No
  Sender: FDA-Public Use
  Company Number: US-TEVA-2010005999

PATIENT
  Sex: Female

DRUGS (23)
  1. DIPHENOXYLATE [Concomitant]
     Dates: start: 20100501
  2. KLOR-CON [Concomitant]
     Dates: start: 20040701
  3. TYLENOL ARTHRITIS [Concomitant]
  4. SPIRONOLACTONE [Concomitant]
     Dates: start: 20060401
  5. FLUTICASONE FUROATE [Concomitant]
     Dates: start: 20091201
  6. PEPCID [Concomitant]
  7. ZANTAC [Concomitant]
     Dates: start: 20100701
  8. DEXLANSOPRAZOLE [Concomitant]
     Dates: start: 20100406
  9. PROTONIX [Concomitant]
     Dates: start: 20100201
  10. LISINOPRIL [Concomitant]
     Dates: start: 20040701
  11. VITAMIN TAB [Concomitant]
  12. CALCIUM CARBONATE [Concomitant]
  13. FEXOFENADINE [Concomitant]
     Dates: start: 20091201
  14. NUVIGIL [Suspect]
     Indication: HYPERSOMNIA
     Route: 048
     Dates: start: 20100201, end: 20100701
  15. ASPIRIN [Concomitant]
     Dates: start: 20040701
  16. SIMVASTATIN [Concomitant]
     Dates: start: 20070101
  17. PREMARIN [Concomitant]
     Dates: start: 20051201
  18. ALIGN [Concomitant]
     Dates: start: 20101001
  19. CHOLESTYRAMINE [Concomitant]
     Dates: start: 20100701
  20. NUVIGIL [Suspect]
     Route: 048
     Dates: start: 20100701
  21. CARVEDILOL [Concomitant]
     Dates: start: 20040701
  22. FUROSEMIDE [Concomitant]
     Dates: start: 20040701
  23. HYOSCYAMINE [Concomitant]
     Dates: start: 20100701

REACTIONS (7)
  - IRRITABLE BOWEL SYNDROME [None]
  - BRUXISM [None]
  - DRUG TOLERANCE [None]
  - INTENTIONAL DRUG MISUSE [None]
  - DIARRHOEA [None]
  - ACCIDENTAL EXPOSURE [None]
  - DYSKINESIA [None]
